FAERS Safety Report 5865240-3 (Version None)
Quarter: 2008Q3

REPORT INFORMATION
  Report Type: 
  Country: None (occurrence: None)
  Receive Date: 20080829
  Receipt Date: 20080827
  Transmission Date: 20090109
  Serious: Yes (Life-Threatening, Other)
  Sender: FDA-Public Use
  Company Number: B0534935A

PATIENT
  Age: 71 Year
  Sex: Male

DRUGS (16)
  1. RELIFEN [Suspect]
     Indication: CANCER PAIN
     Dosage: 800MG PER DAY
     Route: 048
     Dates: start: 20080814, end: 20080818
  2. ACETAMINOPHEN [Suspect]
     Indication: DRUG USE FOR UNKNOWN INDICATION
     Dosage: 1800MG PER DAY
     Route: 048
     Dates: end: 20080819
  3. RABEPRAZOLE SODIUM [Suspect]
     Indication: DRUG USE FOR UNKNOWN INDICATION
     Dosage: 10MG PER DAY
     Route: 048
     Dates: end: 20080819
  4. THEO-DUR [Concomitant]
     Indication: DRUG USE FOR UNKNOWN INDICATION
     Dosage: 200MG PER DAY
     Route: 048
     Dates: end: 20080819
  5. THYRADIN [Concomitant]
     Indication: DRUG USE FOR UNKNOWN INDICATION
     Dosage: 25MCG PER DAY
     Route: 048
     Dates: end: 20080819
  6. AMOBAN [Concomitant]
     Indication: DRUG USE FOR UNKNOWN INDICATION
     Dosage: 15MG PER DAY
     Route: 048
     Dates: end: 20080819
  7. GABAPENTIN [Concomitant]
     Indication: DRUG USE FOR UNKNOWN INDICATION
     Dosage: 300MG PER DAY
     Route: 048
     Dates: end: 20080819
  8. WARFARIN SODIUM [Concomitant]
     Indication: DRUG USE FOR UNKNOWN INDICATION
     Route: 048
     Dates: end: 20080818
  9. PURSENNID [Concomitant]
     Indication: DRUG USE FOR UNKNOWN INDICATION
     Dosage: 12MG PER DAY
     Route: 058
     Dates: end: 20080818
  10. DUROTEP [Concomitant]
     Indication: DRUG USE FOR UNKNOWN INDICATION
     Route: 048
  11. ZOPICLONE [Concomitant]
     Indication: DRUG USE FOR UNKNOWN INDICATION
     Dosage: 10MG AS REQUIRED
     Route: 048
  12. PIPERACILLIN SODIUM [Concomitant]
     Dosage: 9G PER DAY
     Route: 042
     Dates: start: 20080812, end: 20080818
  13. ASCORBIC ACID [Concomitant]
     Route: 065
     Dates: start: 20080812, end: 20080818
  14. FLAVINE ADENINE DINUCLEOTIDE [Concomitant]
     Route: 065
     Dates: start: 20080812, end: 20080818
  15. THIAMINE DISULFIDE [Concomitant]
     Dates: start: 20080812, end: 20080818
  16. ZOMETA [Concomitant]
     Indication: DRUG USE FOR UNKNOWN INDICATION
     Dosage: 4MG PER DAY
     Route: 065

REACTIONS (3)
  - HAEMOPTYSIS [None]
  - INTERNATIONAL NORMALISED RATIO INCREASED [None]
  - MELAENA [None]
